FAERS Safety Report 14854475 (Version 1)
Quarter: 2018Q2

REPORT INFORMATION
  Report Type: Spontaneous
  Country: GB (occurrence: GB)
  Receive Date: 20180507
  Receipt Date: 20180507
  Transmission Date: 20180711
  Serious: Yes (Hospitalization)
  Sender: FDA-Public Use
  Company Number: GB-PFIZER INC-2018178477

PATIENT
  Sex: Male

DRUGS (18)
  1. PRAVASTATIN. [Concomitant]
     Active Substance: PRAVASTATIN
     Dosage: 40 MG, 1X/DAY (EVERY NIGHT)
  2. CALCIUM CARBONATE. [Concomitant]
     Active Substance: CALCIUM CARBONATE
     Dosage: 1.5 G, UNK
  3. LANSOPRAZOLE. [Concomitant]
     Active Substance: LANSOPRAZOLE
     Dosage: 30 MG, 1X/DAY (EVERY MORNING)
  4. ORAMORPH [Concomitant]
     Active Substance: MORPHINE SULFATE
     Dosage: 2.5ML - 5ML FOUR HOURLY EVERY MORNING
  5. COLECALCIFEROL [Concomitant]
     Active Substance: CHOLECALCIFEROL
     Dosage: 400 IU, UNK
  6. WARFARIN [Suspect]
     Active Substance: WARFARIN
     Dosage: UNK
  7. SODIUM PIDOLATE [Concomitant]
     Dosage: UNK
  8. DIGOXIN. [Concomitant]
     Active Substance: DIGOXIN
     Dosage: 125 UG, 1X/DAY
  9. HALOPERIDOL. [Concomitant]
     Active Substance: HALOPERIDOL
     Dosage: 1000 UG, 1X/DAY
  10. METOPROLOL. [Concomitant]
     Active Substance: METOPROLOL
     Dosage: 150 MG, 1X/DAY
  11. CALCIUM PHOSPHATE [Concomitant]
     Active Substance: CALCIUM PHOSPHATE
     Dosage: UNK
  12. PHENYTOIN. [Suspect]
     Active Substance: PHENYTOIN
     Dosage: 300 MG, 1X/DAY
  13. GLYCERYL TRINITRATE [Concomitant]
     Active Substance: NITROGLYCERIN
     Dosage: 400 UG, 1X/DAY (AT NIGHT)
     Route: 060
  14. CLOBAZAM [Concomitant]
     Active Substance: CLOBAZAM
     Dosage: 20 MG, 1X/DAY
  15. PHENYTOIN. [Suspect]
     Active Substance: PHENYTOIN
     Dosage: 600 MG, 1X/DAY
  16. SERTRALINE [Concomitant]
     Active Substance: SERTRALINE HYDROCHLORIDE
     Dosage: 50 MG, 1X/DAY
  17. MST CONTINUS [Concomitant]
     Active Substance: MORPHINE SULFATE
     Dosage: 60 MG, 1X/DAY
  18. FOLIC ACID. [Concomitant]
     Active Substance: FOLIC ACID
     Dosage: 5 MG, 1X/DAY

REACTIONS (3)
  - Blood albumin decreased [Recovering/Resolving]
  - Toxicity to various agents [Unknown]
  - International normalised ratio increased [Recovering/Resolving]
